FAERS Safety Report 7305686-X (Version None)
Quarter: 2011Q1

REPORT INFORMATION
  Report Type: 
  Country: None (occurrence: None)
  Receive Date: 20110222
  Receipt Date: 20110214
  Transmission Date: 20110831
  Serious: Yes (Hospitalization, Congenital Anomaly)
  Sender: FDA-Public Use
  Company Number: A0894330A

PATIENT
  Sex: Male
  Weight: 3.4 kg

DRUGS (2)
  1. PAXIL [Suspect]
     Indication: ANXIETY DISORDER
     Dosage: 40MG AT NIGHT
     Route: 064
  2. PRENATAL VITAMINS [Concomitant]

REACTIONS (7)
  - MICROGNATHIA [None]
  - CONGENITAL FLAT FEET [None]
  - CLEFT PALATE [None]
  - RIB HYPOPLASIA [None]
  - DRUG EXPOSURE DURING PREGNANCY [None]
  - PIERRE ROBIN SYNDROME [None]
  - PATENT DUCTUS ARTERIOSUS [None]
